FAERS Safety Report 17269327 (Version 1)
Quarter: 2020Q1

REPORT INFORMATION
  Report Type: Report from Study
  Country: US (occurrence: US)
  Receive Date: 20200114
  Receipt Date: 20200114
  Transmission Date: 20200409
  Serious: Yes (Other)
  Sender: FDA-Public Use
  Company Number: US-ASTELLAS-2020US000898

PATIENT
  Age: 61 Year
  Sex: Male

DRUGS (1)
  1. ENZALUTAMIDE [Suspect]
     Active Substance: ENZALUTAMIDE
     Indication: HORMONE-REFRACTORY PROSTATE CANCER
     Route: 048
     Dates: start: 20191220, end: 20200106

REACTIONS (5)
  - Swollen tongue [Unknown]
  - Hypersensitivity [Unknown]
  - Dysphagia [Unknown]
  - Speech disorder [Unknown]
  - Pharyngeal swelling [Unknown]
